FAERS Safety Report 7168469-X (Version None)
Quarter: 2010Q4

REPORT INFORMATION
  Report Type: 
  Country: None (occurrence: None)
  Receive Date: 20101216
  Receipt Date: 20100107
  Transmission Date: 20110411
  Serious: No
  Sender: FDA-Public Use
  Company Number: US-AMGEN-KDL384315

PATIENT

DRUGS (2)
  1. ENBREL [Suspect]
     Indication: ANKYLOSING SPONDYLITIS
     Dosage: 50 MG, 2 TIMES/WK
     Route: 058
     Dates: start: 20081020
  2. PREGABALIN [Concomitant]

REACTIONS (9)
  - ARTHRALGIA [None]
  - DECREASED IMMUNE RESPONSIVENESS [None]
  - DRUG INEFFECTIVE [None]
  - GAIT DISTURBANCE [None]
  - JOINT SWELLING [None]
  - NASAL POLYPS [None]
  - RHINORRHOEA [None]
  - SINUSITIS [None]
  - VOMITING [None]
